FAERS Safety Report 8237064-3 (Version None)
Quarter: 2012Q1

REPORT INFORMATION
  Report Type: 
  Country: None (occurrence: None)
  Receive Date: 20120327
  Receipt Date: 20120320
  Transmission Date: 20120608
  Serious: Yes (Other)
  Sender: FDA-Public Use
  Company Number: US-PFIZER INC-2012073611

PATIENT

DRUGS (1)
  1. HYDROCORTISONE [Suspect]
     Dosage: 10MG IN THE MORNING AND 5MG IN THE EVENING
     Route: 048

REACTIONS (3)
  - MENTAL IMPAIRMENT [None]
  - HEPATIC ENCEPHALOPATHY [None]
  - HEPATIC FAILURE [None]
